FAERS Safety Report 12477537 (Version 3)
Quarter: 2017Q1

REPORT INFORMATION
  Report Type: Spontaneous
  Country: JP (occurrence: JP)
  Receive Date: 20160617
  Receipt Date: 20170104
  Transmission Date: 20170428
  Serious: Yes (Hospitalization)
  Sender: FDA-Public Use
  Company Number: JP-VALIDUS PHARMACEUTICALS LLC-JP-2016VAL002106

PATIENT
  Age: 66 Year
  Sex: Male

DRUGS (1)
  1. PARLODEL [Suspect]
     Active Substance: BROMOCRIPTINE MESYLATE
     Indication: PITUITARY TUMOUR BENIGN
     Dosage: UNK
     Route: 048

REACTIONS (9)
  - Skin reaction [Recovered/Resolved]
  - Skin necrosis [Recovered/Resolved]
  - Bromoderma [Recovering/Resolving]
  - Skin ulcer [Recovered/Resolved]
  - Dermatitis [Recovered/Resolved]
  - Cheilitis [Recovered/Resolved]
  - Anal ulcer [Recovered/Resolved]
  - Pain of skin [Recovered/Resolved]
  - Rash [Recovered/Resolved]
